FAERS Safety Report 20988498 (Version 1)
Quarter: 2022Q2

REPORT INFORMATION
  Report Type: Spontaneous
  Country: US (occurrence: None)
  Receive Date: 20220620
  Receipt Date: 20220620
  Transmission Date: 20220721
  Serious: Yes (Death)
  Sender: FDA-Public Use
  Company Number: None

PATIENT
  Age: 90 Year
  Sex: Female

DRUGS (4)
  1. PROMACTA [Suspect]
     Active Substance: ELTROMBOPAG OLAMINE
     Indication: Immune thrombocytopenia
     Dosage: FREQUENCY : DAILY;?
     Route: 048
     Dates: start: 20220121, end: 20220603
  2. ATORVASTATIN [Concomitant]
     Active Substance: ATORVASTATIN
  3. LASIX [Concomitant]
     Active Substance: FUROSEMIDE
  4. MACROBID [Concomitant]
     Active Substance: NITROFURANTOIN\NITROFURANTOIN MONOHYDRATE

REACTIONS (5)
  - Asthenia [None]
  - Fatigue [None]
  - Dyspnoea exertional [None]
  - Jaundice [None]
  - Nausea [None]

NARRATIVE: CASE EVENT DATE: 20220603
